FAERS Safety Report 12837246 (Version 1)
Quarter: 2016Q4

REPORT INFORMATION
  Report Type: Spontaneous
  Country: US (occurrence: US)
  Receive Date: 20161009
  Receipt Date: 20161009
  Transmission Date: 20170207
  Serious: Yes (Hospitalization)
  Sender: FDA-Public Use
  Company Number: None

PATIENT
  Age: 20 Year
  Sex: Male
  Weight: 60 kg

DRUGS (1)
  1. FLUCONAZOLE. [Suspect]
     Active Substance: FLUCONAZOLE
     Indication: RASH
     Dosage: ?          QUANTITY:5 TABLET(S);OTHER FREQUENCY:TWICE IN A WEEK;?
     Route: 048
     Dates: start: 20160708, end: 20160818

REACTIONS (6)
  - Rhinorrhoea [None]
  - Hyperchlorhydria [None]
  - Heart rate increased [None]
  - Sleep disorder [None]
  - Pain [None]
  - Feeling abnormal [None]

NARRATIVE: CASE EVENT DATE: 20160709
